FAERS Safety Report 6385526-6 (Version None)
Quarter: 2009Q4

REPORT INFORMATION
  Report Type: 
  Country: None (occurrence: None)
  Receive Date: 20091002
  Receipt Date: 20080918
  Transmission Date: 20100525
  Serious: No
  Sender: FDA-Public Use
  Company Number: US-ASTRAZENECA-2008UW19416

PATIENT
  Age: 48 Year
  Sex: Female

DRUGS (6)
  1. ARIMIDEX [Suspect]
     Indication: BREAST CANCER
     Route: 048
  2. PHENOBARB [Concomitant]
  3. DEPAKOTE [Concomitant]
  4. LORAZEPAM [Concomitant]
  5. DIOVAN [Concomitant]
  6. KEPRA [Concomitant]

REACTIONS (2)
  - CONTUSION [None]
  - FALL [None]
